FAERS Safety Report 6467137-7 (Version None)
Quarter: 2009Q4

REPORT INFORMATION
  Report Type: 
  Country: None (occurrence: None)
  Receive Date: 20091202
  Receipt Date: 20091127
  Transmission Date: 20100525
  Serious: Yes (Hospitalization)
  Sender: FDA-Public Use
  Company Number: SE-BRISTOL-MYERS SQUIBB COMPANY-14873095

PATIENT
  Age: 36 Year
  Sex: Male

DRUGS (3)
  1. ORENCIA [Suspect]
     Indication: JUVENILE ARTHRITIS
     Dosage: ORENCIA POWDER FOR CONCENTRATE FOR SOLUTION FOR INFUSION 250 MG AT A DOSE OF 750 MG
     Route: 042
     Dates: start: 20070912
  2. METHOTREXATE TABS [Concomitant]
     Dosage: METHOTREXATE TABLET
  3. PREDNISOLONE [Concomitant]
     Dosage: TABS

REACTIONS (4)
  - EOSINOPHILIA [None]
  - LEUKOCYTOSIS [None]
  - NEPHROLITHIASIS [None]
  - THROMBOCYTOSIS [None]
